FAERS Safety Report 8983013 (Version 1)
Quarter: 2012Q4

REPORT INFORMATION
  Report Type: 
  Country: BR (occurrence: BR)
  Receive Date: 20121224
  Receipt Date: 20121224
  Transmission Date: 20130627
  Serious: Yes (Hospitalization)
  Sender: FDA-Public Use
  Company Number: PHHY2012BR118481

PATIENT
  Age: 65 Year
  Sex: Male
  Weight: 63 kg

DRUGS (6)
  1. LOVASTATIN [Suspect]
     Route: 048
  2. ROSUVASTATIN CALCIUM [Concomitant]
     Indication: BLOOD CHOLESTEROL INCREASED
     Dosage: 1 DF, UNK
     Route: 048
     Dates: start: 2011
  3. ATENOLOL [Concomitant]
     Indication: HYPERTENSION
     Dosage: 1 DF, UNK
     Route: 048
  4. OMEPRAZOLE [Concomitant]
     Dosage: 1 DF, UNK
  5. ACETYLSALICYLIC ACID [Concomitant]
     Dosage: 1 DF, UNK
     Route: 048
  6. SUSTRATE [Concomitant]
     Dosage: 1 DF, TID
     Route: 048

REACTIONS (2)
  - Angina pectoris [Unknown]
  - Myalgia [Recovered/Resolved]
